FAERS Safety Report 15107884 (Version 2)
Quarter: 2018Q3

REPORT INFORMATION
  Report Type: Report from Study
  Country: MX (occurrence: MX)
  Receive Date: 20180704
  Receipt Date: 20180803
  Transmission Date: 20181010
  Serious: Yes (Hospitalization, Other)
  Sender: FDA-Public Use
  Company Number: MX-UCBSA-2018028422

PATIENT
  Sex: Male
  Weight: 54 kg

DRUGS (14)
  1. TOPIRAMATE. [Interacting]
     Active Substance: TOPIRAMATE
     Indication: SEIZURE
     Dosage: 200 MG, 2X/DAY (BID)
  2. PHENYTOIN SODIUM. [Interacting]
     Active Substance: PHENYTOIN SODIUM
     Dosage: 2 DF, 2X/DAY (BID)
  3. LAMOTRIGINE. [Interacting]
     Active Substance: LAMOTRIGINE
     Indication: SEIZURE
     Dosage: 1 DF, 2X/DAY (BID)
  4. LACOSAMIDE. [Suspect]
     Active Substance: LACOSAMIDE
     Indication: SEIZURE
     Dosage: 1/2 OF A TABLET, 2X/DAY (BID)
     Route: 048
     Dates: start: 2016
  5. LACOSAMIDE. [Interacting]
     Active Substance: LACOSAMIDE
     Dosage: 1 TABLET, 2X/DAY (BID)
     Route: 048
     Dates: end: 2017
  6. VALPROATE [Interacting]
     Active Substance: VALPROIC ACID
     Indication: MYOCLONUS
     Dosage: UNK
  7. TOPIRAMATE. [Interacting]
     Active Substance: TOPIRAMATE
     Dosage: DOSE DECREASED
  8. PHENYTOIN SODIUM. [Interacting]
     Active Substance: PHENYTOIN SODIUM
     Indication: SEIZURE
     Dosage: UNK
  9. PREDNISONE. [Interacting]
     Active Substance: PREDNISONE
     Indication: PRODUCT USED FOR UNKNOWN INDICATION
     Dosage: UNK
  10. LEVETIRACETAM. [Concomitant]
     Active Substance: LEVETIRACETAM
     Indication: SEIZURE
     Dosage: 1 G, 3X/DAY (TID)
     Dates: start: 2016
  11. LACOSAMIDE. [Interacting]
     Active Substance: LACOSAMIDE
     Dosage: ? OF A TABLET, 2X/DAY (BID)
     Route: 048
  12. CLONAZEPAM. [Concomitant]
     Active Substance: CLONAZEPAM
     Indication: SLEEP DISORDER
  13. LAMOTRIGINE. [Interacting]
     Active Substance: LAMOTRIGINE
     Dosage: DOSE DECREASED
  14. VALPROATE MAGNESIUM [Concomitant]
     Active Substance: VALPROATE MAGNESIUM
     Indication: PRODUCT USED FOR UNKNOWN INDICATION

REACTIONS (8)
  - Eating disorder [Unknown]
  - Off label use [Unknown]
  - Seizure [Recovering/Resolving]
  - Drug ineffective [Unknown]
  - Weight decreased [Unknown]
  - Myoclonus [Unknown]
  - Drug withdrawal syndrome [Unknown]
  - Drug interaction [Unknown]

NARRATIVE: CASE EVENT DATE: 2016
